FAERS Safety Report 10068649 (Version 1)
Quarter: 2014Q2

REPORT INFORMATION
  Report Type: Spontaneous
  Country: JP (occurrence: JP)
  Receive Date: 20140409
  Receipt Date: 20140409
  Transmission Date: 20141212
  Serious: Yes (Other)
  Sender: FDA-Public Use
  Company Number: JP-GLAXOSMITHKLINE-B0984005A

PATIENT
  Sex: 0

DRUGS (1)
  1. ZANTAC [Suspect]
     Route: 048

REACTIONS (1)
  - Atrial fibrillation [Unknown]
